FAERS Safety Report 17440345 (Version 1)
Quarter: 2020Q1

REPORT INFORMATION
  Report Type: Spontaneous
  Country: NL (occurrence: NL)
  Receive Date: 20200220
  Receipt Date: 20200220
  Transmission Date: 20200409
  Serious: Yes (Other)
  Sender: FDA-Public Use
  Company Number: NVSC2020NL043415

PATIENT
  Age: 67 Year
  Sex: Male
  Weight: 80.1 kg

DRUGS (3)
  1. REMICADE [Suspect]
     Active Substance: INFLIXIMAB
     Indication: PSORIASIS
     Dosage: UNK
     Route: 042
  2. METHOTREXATE. [Suspect]
     Active Substance: METHOTREXATE
     Indication: PRODUCT USED FOR UNKNOWN INDICATION
     Dosage: UNK
     Route: 065
  3. INFLECTRA [Suspect]
     Active Substance: INFLIXIMAB-DYYB
     Indication: PSORIASIS
     Dosage: UNK
     Route: 065
     Dates: start: 20100604

REACTIONS (1)
  - Interstitial lung disease [Recovering/Resolving]

NARRATIVE: CASE EVENT DATE: 201612
